FAERS Safety Report 4684444-9 (Version None)
Quarter: 2005Q2

REPORT INFORMATION
  Report Type: 
  Country: None (occurrence: None)
  Receive Date: 20050607
  Receipt Date: 20050408
  Transmission Date: 20051028
  Serious: Yes (Death, Hospitalization, Other)
  Sender: FDA-Public Use
  Company Number: PHBS2005JP05068

PATIENT
  Age: 66 Year
  Sex: Male
  Weight: 60 kg

DRUGS (28)
  1. PRODIF [Suspect]
     Indication: SYSTEMIC MYCOSIS
     Dosage: 400 MG/D
     Route: 042
     Dates: start: 20050301, end: 20050310
  2. PRODIF [Suspect]
     Dosage: 200 MG/D
     Route: 042
     Dates: start: 20050311, end: 20050323
  3. PRODIF [Suspect]
     Dosage: 200 MG/D
     Route: 042
     Dates: start: 20050408
  4. PREDNISOLONE ACETATE [Concomitant]
     Dosage: 30 MG/D
     Route: 042
     Dates: start: 20050408
  5. SOLU-MEDROL [Concomitant]
     Dosage: 1 G/D
     Route: 042
     Dates: start: 20041225, end: 20041227
  6. CATABON [Concomitant]
     Indication: SHOCK
     Dosage: 10 ML/D
     Dates: start: 20050408
  7. FLUMARIN [Concomitant]
     Dosage: 1 G/D
     Route: 042
     Dates: start: 20050408, end: 20050412
  8. MODACIN [Concomitant]
     Dosage: 1 G/D
     Route: 042
     Dates: start: 20050412
  9. PERSANTIN [Concomitant]
  10. NEORAL [Suspect]
     Indication: NEPHROTIC SYNDROME
     Dosage: 150 MG/DAY
     Route: 048
     Dates: start: 20050205, end: 20050407
  11. NEORAL [Suspect]
     Dosage: 150 MG/D
     Route: 048
     Dates: start: 20050220, end: 20050408
  12. LOCHOL [Suspect]
     Indication: HYPERCHOLESTEROLAEMIA
     Dosage: 30 MG/D
     Route: 048
     Dates: start: 20050125, end: 20050408
  13. SIGMART [Suspect]
     Indication: ANGINA UNSTABLE
     Dosage: 15 MG/D
     Route: 048
     Dates: start: 20050309, end: 20050408
  14. SIGMART [Suspect]
     Dosage: 48 MG/D
     Dates: start: 20050408, end: 20050412
  15. DIFLUCAN [Suspect]
     Indication: SYSTEMIC MYCOSIS
     Dosage: 200 MG/D
     Route: 048
     Dates: start: 20050323, end: 20050408
  16. BAYASPIRIN [Suspect]
     Indication: ANGINA UNSTABLE
     Dosage: 100 MG/D
     Route: 048
     Dates: start: 20041224, end: 20050408
  17. PANALDINE [Suspect]
     Indication: ANGINA UNSTABLE
     Dosage: 200 MG/D
     Route: 048
     Dates: start: 20050307, end: 20050408
  18. ALTAT [Suspect]
     Indication: PROPHYLAXIS AGAINST GASTROINTESTINAL ULCER
     Dosage: 75 MG/D
     Route: 048
     Dates: start: 20041226, end: 20050413
  19. ALTAT [Suspect]
     Dosage: 75 MG/D
     Route: 042
     Dates: start: 20050414, end: 20050418
  20. PERSANTIN-L [Suspect]
     Indication: PROTEINURIA
     Dosage: 300 MG/D
     Route: 048
     Dates: start: 20041224, end: 20050408
  21. MUCOSTA [Concomitant]
     Indication: PROPHYLAXIS AGAINST GASTROINTESTINAL ULCER
     Dosage: 300 MG/D
     Route: 048
     Dates: start: 20041224, end: 20050408
  22. ALDACTONE [Suspect]
     Indication: RENAL FAILURE
     Dosage: 75 MG/D
     Route: 048
     Dates: start: 20041224, end: 20050408
  23. PRERAN [Concomitant]
     Indication: PROTEINURIA
     Dosage: 0.5 MG/D
     Route: 048
     Dates: start: 20050119, end: 20050408
  24. ZYLORIC [Suspect]
     Indication: HYPERURICAEMIA
     Dosage: 100 MG/D
     Route: 048
     Dates: start: 20041224, end: 20050408
  25. TENORMIN [Suspect]
     Indication: ANGINA UNSTABLE
     Dosage: 25 MG/D
     Route: 048
     Dates: start: 20041224, end: 20050408
  26. NU-LOTAN [Suspect]
     Indication: PROTEINURIA
     Dosage: 50 MG/D
     Route: 048
     Dates: start: 20041224, end: 20050408
  27. PREDONINE [Concomitant]
     Dosage: 40 MG/D
     Route: 048
     Dates: start: 20041220, end: 20050408
  28. LASIX [Suspect]
     Indication: RENAL FAILURE
     Dosage: 80 MG/D
     Route: 048
     Dates: start: 20041224, end: 20050408

REACTIONS (21)
  - ACUTE RESPIRATORY DISTRESS SYNDROME [None]
  - BLOOD BETA-D-GLUCAN INCREASED [None]
  - BLOOD CULTURE POSITIVE [None]
  - BLOOD PRESSURE DECREASED [None]
  - C-REACTIVE PROTEIN INCREASED [None]
  - CHEST X-RAY ABNORMAL [None]
  - CORONARY ARTERIAL STENT INSERTION [None]
  - DIARRHOEA [None]
  - DRUG LEVEL INCREASED [None]
  - ESCHERICHIA INFECTION [None]
  - GRANULOCYTOPENIA [None]
  - HAEMODIALYSIS [None]
  - HYPOXIA [None]
  - INFECTED SKIN ULCER [None]
  - MOUTH BREATHING [None]
  - PNEUMONIA [None]
  - PYREXIA [None]
  - SEPTIC SHOCK [None]
  - THROMBOCYTOPENIA [None]
  - URINE OUTPUT DECREASED [None]
  - WHITE BLOOD CELL COUNT DECREASED [None]
